FAERS Safety Report 10071904 (Version 1)
Quarter: 2014Q2

REPORT INFORMATION
  Report Type: Spontaneous
  Country: BR (occurrence: BR)
  Receive Date: 20140411
  Receipt Date: 20140411
  Transmission Date: 20141212
  Serious: Yes (Disabling)
  Sender: FDA-Public Use
  Company Number: BR-RANBAXY-2014R5-79802

PATIENT
  Age: 7 Year
  Sex: Female
  Weight: 29 kg

DRUGS (1)
  1. AMOXICILLIN [Suspect]
     Indication: PHARYNGITIS
     Dosage: 10 ML, TID
     Route: 048
     Dates: start: 20140323, end: 20140325

REACTIONS (4)
  - Pain in extremity [Recovered/Resolved]
  - Loss of control of legs [Recovered/Resolved]
  - Product contamination [Unknown]
  - Product odour abnormal [Unknown]
